FAERS Safety Report 19651318 (Version 1)
Quarter: 2021Q3

REPORT INFORMATION
  Report Type: Spontaneous
  Country: US (occurrence: US)
  Receive Date: 20210803
  Receipt Date: 20210803
  Transmission Date: 20211014
  Serious: No
  Sender: FDA-Public Use
  Company Number: None

PATIENT
  Age: 61 Year
  Sex: Male
  Weight: 140 kg

DRUGS (1)
  1. PERPHENAZINE (PERPHENAZINE 4MG TAB) [Suspect]
     Active Substance: PERPHENAZINE
     Indication: BIPOLAR I DISORDER
     Route: 048
     Dates: start: 20170714, end: 20210416

REACTIONS (3)
  - Akathisia [None]
  - Therapy cessation [None]
  - Tardive dyskinesia [None]

NARRATIVE: CASE EVENT DATE: 20210416
